FAERS Safety Report 15401459 (Version 1)
Quarter: 2018Q3

REPORT INFORMATION
  Report Type: Spontaneous
  Country: US (occurrence: US)
  Receive Date: 20180919
  Receipt Date: 20180919
  Transmission Date: 20181010
  Serious: Yes (Other)
  Sender: FDA-Public Use
  Company Number: US-BRISTOL-MYERS SQUIBB COMPANY-BMS-2018-085149

PATIENT
  Sex: Male
  Weight: 92.98 kg

DRUGS (1)
  1. ELIQUIS [Suspect]
     Active Substance: APIXABAN
     Indication: CARDIAC OPERATION
     Dosage: 5 MG, BID
     Route: 048
     Dates: start: 2018

REACTIONS (6)
  - Wound haemorrhage [Unknown]
  - Eye disorder [Unknown]
  - Haemorrhage [Unknown]
  - Contusion [Unknown]
  - Product use in unapproved indication [Unknown]
  - Product use issue [Unknown]

NARRATIVE: CASE EVENT DATE: 2018
